FAERS Safety Report 14249603 (Version 3)
Quarter: 2017Q4

REPORT INFORMATION
  Report Type: Report from Study
  Country: IT (occurrence: IT)
  Receive Date: 20171205
  Receipt Date: 20171227
  Transmission Date: 20180321
  Serious: Yes (Hospitalization)
  Sender: FDA-Public Use
  Company Number: IT-ROCHE-2029857

PATIENT
  Age: 58 Year
  Sex: Male

DRUGS (6)
  1. VEMURAFENIB. [Suspect]
     Active Substance: VEMURAFENIB
     Indication: HAIRY CELL LEUKAEMIA
     Dosage: DATE OF LAST DOSE PRIOR TO SAE: 14/NOV/2017.
     Route: 048
     Dates: start: 20171102
  2. VEMURAFENIB. [Suspect]
     Active Substance: VEMURAFENIB
     Dosage: THE DRUG TEMOPORARILY SUSPENDED AND RESUMED AT ANOTHER DOSE
     Route: 048
     Dates: start: 20171115
  3. COBIMETINIB. [Suspect]
     Active Substance: COBIMETINIB
     Dosage: THE DRUG TEMOPORARILY SUSPENDED AND RESUMED AT ANOTHER DOSE
     Route: 050
     Dates: start: 20171115
  4. MESALAZINE [Concomitant]
     Active Substance: MESALAMINE
     Indication: HAEMORRHOIDS
     Route: 054
     Dates: start: 20171109, end: 20171113
  5. MESALAZINE [Concomitant]
     Active Substance: MESALAMINE
     Route: 054
     Dates: start: 20171118, end: 20171119
  6. COBIMETINIB. [Suspect]
     Active Substance: COBIMETINIB
     Indication: HAIRY CELL LEUKAEMIA
     Dosage: DATE OF LAST DOSE PRIOR TO SAE: 14/NOV/2017.
     Route: 050
     Dates: start: 20171102

REACTIONS (2)
  - Chorioretinopathy [Recovering/Resolving]
  - Stevens-Johnson syndrome [Recovering/Resolving]

NARRATIVE: CASE EVENT DATE: 20171106
